FAERS Safety Report 13380792 (Version 3)
Quarter: 2017Q2

REPORT INFORMATION
  Report Type: Report from Study
  Country: JP (occurrence: JP)
  Receive Date: 20170329
  Receipt Date: 20170424
  Transmission Date: 20170830
  Serious: Yes (Death, Other)
  Sender: FDA-Public Use
  Company Number: JP-BRISTOL-MYERS SQUIBB COMPANY-BMS-2017-026494

PATIENT
  Age: 73 Year
  Sex: Male

DRUGS (1)
  1. NIVOLUMAB [Suspect]
     Active Substance: NIVOLUMAB
     Indication: HODGKIN^S DISEASE
     Dosage: UNK
     Route: 041
     Dates: start: 20170209, end: 2017

REACTIONS (2)
  - Death [Fatal]
  - Histiocytosis haematophagic [Not Recovered/Not Resolved]

NARRATIVE: CASE EVENT DATE: 201703
